FAERS Safety Report 6711272-2 (Version None)
Quarter: 2010Q2

REPORT INFORMATION
  Report Type: 
  Country: None (occurrence: None)
  Receive Date: 20100505
  Receipt Date: 20100430
  Transmission Date: 20101027
  Serious: Yes (Death, Hospitalization)
  Sender: FDA-Public Use
  Company Number: JP-BRISTOL-MYERS SQUIBB COMPANY-15075393

PATIENT
  Age: 69 Year
  Sex: Male
  Weight: 60 kg

DRUGS (6)
  1. PARAPLATIN [Suspect]
     Indication: LUNG NEOPLASM MALIGNANT
     Route: 041
     Dates: start: 20090206, end: 20090730
  2. CAMPTOSAR [Suspect]
     Indication: LUNG NEOPLASM MALIGNANT
     Route: 041
     Dates: start: 20090206, end: 20090508
  3. LASTET [Suspect]
     Indication: LUNG NEOPLASM MALIGNANT
     Route: 048
     Dates: start: 20090522, end: 20090812
  4. AMRUBICIN HCL [Suspect]
     Indication: LUNG NEOPLASM MALIGNANT
     Route: 041
     Dates: start: 20090827, end: 20091121
  5. EUGLUCON [Concomitant]
     Indication: DIABETES MELLITUS
     Route: 048
  6. BASEN [Concomitant]
     Indication: DIABETES MELLITUS
     Dosage: BASEN OD
     Route: 048

REACTIONS (3)
  - MALIGNANT NEOPLASM PROGRESSION [None]
  - PNEUMATOSIS INTESTINALIS [None]
  - PNEUMONIA [None]
